FAERS Safety Report 19636348 (Version 1)
Quarter: 2021Q3

REPORT INFORMATION
  Report Type: Spontaneous
  Country: US (occurrence: US)
  Receive Date: 20210729
  Receipt Date: 20210729
  Transmission Date: 20211014
  Serious: No
  Sender: FDA-Public Use
  Company Number: US-PERRIGO-20US014079

PATIENT
  Age: 45 Year
  Sex: Male
  Weight: 72.56 kg

DRUGS (5)
  1. MINOXIDIL. [Suspect]
     Active Substance: MINOXIDIL
     Dosage: 1 ML, BID
     Route: 061
     Dates: start: 202001, end: 202008
  2. MINOXIDIL. [Suspect]
     Active Substance: MINOXIDIL
     Indication: ALOPECIA
     Dosage: 1 ML, BID
     Route: 061
     Dates: start: 201910, end: 201912
  3. MINOXIDIL. [Suspect]
     Active Substance: MINOXIDIL
     Dosage: 0.8 ML, BID
     Route: 061
     Dates: start: 202009, end: 20200927
  4. MINOXIDIL. [Suspect]
     Active Substance: MINOXIDIL
     Dosage: 0.8 ML, BID
     Route: 061
     Dates: start: 202008, end: 202009
  5. MINOXIDIL. [Suspect]
     Active Substance: MINOXIDIL
     Dosage: 0.8 ML, SINGLE
     Route: 061
     Dates: start: 20200928, end: 20200928

REACTIONS (6)
  - Application site irritation [Recovering/Resolving]
  - Application site erythema [Recovering/Resolving]
  - Application site pruritus [Recovering/Resolving]
  - Therapeutic product effect decreased [Unknown]
  - Underdose [Recovered/Resolved]
  - Alopecia [Not Recovered/Not Resolved]

NARRATIVE: CASE EVENT DATE: 202002
